FAERS Safety Report 10345953 (Version 2)
Quarter: 2020Q1

REPORT INFORMATION
  Report Type: Spontaneous
  Country: CA (occurrence: CA)
  Receive Date: 20140728
  Receipt Date: 20200205
  Transmission Date: 20200409
  Serious: Yes (Other)
  Sender: FDA-Public Use
  Company Number: CA-MUNDIPHARMA DS AND PHARMACOVIGILANCE-CAN-2014-0005076

PATIENT
  Sex: Male

DRUGS (5)
  1. CODEINE [Suspect]
     Active Substance: CODEINE
     Indication: HEADACHE
     Dosage: UNK
     Route: 065
  2. BUTRANS [Suspect]
     Active Substance: BUPRENORPHINE
     Indication: HEADACHE
     Dosage: 5 MCG, Q1H
     Route: 062
  3. BUTRANS [Suspect]
     Active Substance: BUPRENORPHINE
     Dosage: 15 MCG, Q1H (COMBINATION10 MCG/HR  + 5MCG/HR PATCH)
     Route: 062
  4. DEMEROL [Suspect]
     Active Substance: MEPERIDINE HYDROCHLORIDE
     Indication: HEADACHE
     Dosage: UNK
     Route: 065
  5. MORPHINE SULFATE. [Suspect]
     Active Substance: MORPHINE SULFATE
     Indication: HEADACHE
     Dosage: 25 MG, UNK
     Route: 065

REACTIONS (8)
  - Drug ineffective [Unknown]
  - Euphoric mood [Unknown]
  - Mobility decreased [Unknown]
  - Asthenia [Unknown]
  - Intentional product misuse [Unknown]
  - Accidental overdose [Unknown]
  - Drug abuse [Unknown]
  - Dyspnoea [Unknown]
